FAERS Safety Report 23005264 (Version 2)
Quarter: 2023Q4

REPORT INFORMATION
  Report Type: Spontaneous
  Country: DE (occurrence: DE)
  Receive Date: 20230929
  Receipt Date: 20231004
  Transmission Date: 20240110
  Serious: Yes (Hospitalization)
  Sender: FDA-Public Use
  Company Number: DE-AMGEN-DEUSP2023169759

PATIENT
  Sex: Male
  Weight: 90 kg

DRUGS (11)
  1. NEULASTA [Suspect]
     Active Substance: PEGFILGRASTIM
     Indication: Product used for unknown indication
     Dosage: 6 MILLIGRAM
     Route: 058
     Dates: start: 20200130
  2. DOXORUBICIN [Concomitant]
     Active Substance: DOXORUBICIN
     Dosage: 35 MILLIGRAM/SQ. METER BSA
     Dates: start: 20191105, end: 20200127
  3. BLEOMYCIN [Concomitant]
     Active Substance: BLEOMYCIN SULFATE
     Dosage: 10 MILLIGRAM/SQ. METER BSA
     Dates: start: 20191112, end: 20200203
  4. BRENTUXIMAB VEDOTIN [Concomitant]
     Active Substance: BRENTUXIMAB VEDOTIN
  5. CYCLOPHOSPHAMIDE [Concomitant]
     Active Substance: CYCLOPHOSPHAMIDE
     Dosage: 1100 MILLIGRAM/SQ. METER BSA
     Dates: start: 20191105, end: 20200127
  6. DACARBAZINE [Concomitant]
     Active Substance: DACARBAZINE
  7. DEXAMETHASONE [Concomitant]
     Active Substance: DEXAMETHASONE
  8. ETOPOSIDE [Concomitant]
     Active Substance: ETOPOSIDE
     Dosage: 175 MILLIGRAM/SQ. METER BSA
     Dates: start: 20191105, end: 20200129
  9. PROCARBAZINE [Concomitant]
     Active Substance: PROCARBAZINE
     Dosage: 100 MILLIGRAM/SQ. METER BSA
     Dates: start: 20191105, end: 20200127
  10. PREDNISONE [Concomitant]
     Active Substance: PREDNISONE
     Dosage: 40 MILLIGRAM/SQ. METER BSA
     Dates: start: 20191105, end: 20200210
  11. VINCRISTINE [Concomitant]
     Active Substance: VINCRISTINE
     Dosage: 2 MILLIGRAM/SQ. METER BSA
     Dates: start: 20191105, end: 20200203

REACTIONS (2)
  - Pain [Recovered/Resolved]
  - Bone marrow disorder [Recovered/Resolved]

NARRATIVE: CASE EVENT DATE: 20200208
